FAERS Safety Report 11025394 (Version 1)
Quarter: 2015Q2

REPORT INFORMATION
  Report Type: Spontaneous
  Country: US (occurrence: None)
  Receive Date: 20150413
  Receipt Date: 20150413
  Transmission Date: 20150821
  Serious: Yes (Other)
  Sender: FDA-Public Use
  Company Number: None

PATIENT
  Age: 18 Year
  Sex: Female
  Weight: 62 kg

DRUGS (1)
  1. IOPAMIDOL [Suspect]
     Active Substance: IOPAMIDOL
     Indication: COMPUTERISED TOMOGRAM
     Dosage: INTRAVENOUS, 1.8 ML/SECOND
     Route: 042
     Dates: start: 20141212

REACTIONS (2)
  - No reaction on previous exposure to drug [None]
  - Contrast media reaction [None]

NARRATIVE: CASE EVENT DATE: 20141212
